FAERS Safety Report 9369055 (Version 2)
Quarter: 2013Q3

REPORT INFORMATION
  Report Type: Report from Study
  Country: BR (occurrence: BR)
  Receive Date: 20130626
  Receipt Date: 20130906
  Transmission Date: 20140515
  Serious: Yes (Other)
  Sender: FDA-Public Use
  Company Number: PHHY2013BR065179

PATIENT
  Sex: Female
  Weight: 86 kg

DRUGS (9)
  1. SANDOSTATIN LAR [Suspect]
     Indication: ACROMEGALY
     Dosage: 30 MG, EVERY 28 DAYS
     Route: 030
     Dates: start: 201107
  2. SANDOSTATIN LAR [Suspect]
     Indication: GIGANTISM
  3. DOSTINEX [Concomitant]
     Indication: ACROMEGALY
     Dosage: 3 DF, WEEKLY
     Route: 048
     Dates: end: 201304
  4. DOSTINEX [Concomitant]
     Indication: GIGANTISM
     Dosage: 3.5 DF, WEEKLY
     Route: 048
     Dates: start: 201304
  5. CARBAMAZEPINE [Concomitant]
     Indication: EPILEPSY
     Dosage: 2 DF, DAILY
     Route: 048
  6. LOSARTAN [Concomitant]
     Indication: HYPERTENSION
     Dosage: 0.25 DF, DAILY
     Route: 048
  7. OMEPRAZOLE [Concomitant]
     Indication: GASTRIC DISORDER
     Dosage: 2 DF, DAILY
     Route: 048
  8. SERTRALINE [Concomitant]
     Indication: DEPRESSION
     Dosage: 2 DF, DAILY
     Route: 048
  9. NATRILIX SR [Concomitant]
     Indication: DIURETIC THERAPY
     Dosage: 1 DF, DAILY
     Route: 048

REACTIONS (3)
  - Bone formation increased [Not Recovered/Not Resolved]
  - Diabetes mellitus [Recovering/Resolving]
  - Blood growth hormone increased [Recovering/Resolving]
